FAERS Safety Report 8458072-3 (Version None)
Quarter: 2012Q2

REPORT INFORMATION
  Report Type: 
  Country: None (occurrence: None)
  Receive Date: 20120622
  Receipt Date: 20120614
  Transmission Date: 20120825
  Serious: Yes (Hospitalization, Other)
  Sender: FDA-Public Use
  Company Number: US-JNJFOC-20120206721

PATIENT
  Sex: Male

DRUGS (2)
  1. SIMPONI [Suspect]
     Route: 058
  2. SIMPONI [Suspect]
     Indication: RHEUMATOID ARTHRITIS
     Route: 058

REACTIONS (5)
  - STAPHYLOCOCCAL INFECTION [None]
  - DEPRESSION [None]
  - KNEE ARTHROPLASTY [None]
  - THERAPEUTIC RESPONSE DELAYED [None]
  - RHEUMATOID ARTHRITIS [None]
